FAERS Safety Report 13281448 (Version 1)
Quarter: 2017Q1

REPORT INFORMATION
  Report Type: Spontaneous
  Country: DK (occurrence: DK)
  Receive Date: 20170301
  Receipt Date: 20170301
  Transmission Date: 20170428
  Serious: Yes (Hospitalization)
  Sender: FDA-Public Use
  Company Number: DK-AUROBINDO-AUR-APL-2017-30365

PATIENT
  Age: 46 Year
  Sex: Female

DRUGS (2)
  1. MICROGYN [Concomitant]
     Active Substance: ETHINYL ESTRADIOL\LEVONORGESTREL
     Indication: PRODUCT USED FOR UNKNOWN INDICATION
     Route: 065
  2. SERTRALINE [Suspect]
     Active Substance: SERTRALINE HYDROCHLORIDE
     Indication: DEPRESSION
     Dosage: 25 MG, ONCE A DAY
     Route: 048
     Dates: start: 20170119, end: 20170123

REACTIONS (8)
  - Nausea [Unknown]
  - Pruritus [Unknown]
  - Speech disorder [Unknown]
  - Dry mouth [Unknown]
  - Dizziness [Unknown]
  - Swollen tongue [Unknown]
  - Diarrhoea [Unknown]
  - Pharyngeal oedema [Unknown]

NARRATIVE: CASE EVENT DATE: 20170123
